FAERS Safety Report 4867322-1 (Version None)
Quarter: 2005Q4

REPORT INFORMATION
  Report Type: 
  Country: None (occurrence: None)
  Receive Date: 20051222
  Receipt Date: 20051206
  Transmission Date: 20060501
  Serious: Yes (Hospitalization)
  Sender: FDA-Public Use
  Company Number: US200512001086

PATIENT
  Sex: Female

DRUGS (2)
  1. HUMULIN 70/30 [Suspect]
  2. HUMULIN 70/30 PEN (HUMULIN 70/30 PEN) PEN, DISPOSABLE [Concomitant]

REACTIONS (1)
  - LIVER DISORDER [None]
